FAERS Safety Report 4948983-5 (Version None)
Quarter: 2006Q1

REPORT INFORMATION
  Report Type: 
  Country: None (occurrence: None)
  Receive Date: 20060321
  Receipt Date: 20060309
  Transmission Date: 20060701
  Serious: Yes (Hospitalization)
  Sender: FDA-Public Use
  Company Number: 2006PK00508

PATIENT
  Age: 73 Year
  Sex: Female

DRUGS (11)
  1. SEROQUEL [Suspect]
     Indication: DEPRESSION
     Route: 048
     Dates: start: 20051201, end: 20060201
  2. LITHIUM CARBONATE [Interacting]
     Indication: DEPRESSION
     Route: 048
     Dates: start: 20051201, end: 20060201
  3. CIPRALEX [Interacting]
     Indication: DEPRESSION
     Route: 048
     Dates: start: 20051201, end: 20060201
  4. REMERON [Interacting]
     Indication: DEPRESSION
     Route: 048
     Dates: start: 20051201, end: 20060201
  5. VALPROATE SODIUM [Interacting]
     Indication: DEPRESSION
     Route: 048
     Dates: start: 20051201, end: 20060201
  6. BELOC [Concomitant]
     Indication: MYOCARDIAL ISCHAEMIA
     Route: 048
  7. ASPIRIN [Concomitant]
     Indication: MYOCARDIAL ISCHAEMIA
     Route: 048
  8. TEMESTA [Concomitant]
     Indication: DEPRESSION
     Route: 048
  9. PRAVASTATIN [Concomitant]
     Indication: MYOCARDIAL ISCHAEMIA
     Route: 048
  10. CALCIMAGON-D3 [Concomitant]
     Route: 048
  11. FOSAMAX [Concomitant]
     Route: 048

REACTIONS (11)
  - APATHY [None]
  - CONFUSIONAL STATE [None]
  - DEHYDRATION [None]
  - DISORIENTATION [None]
  - DRUG INTERACTION [None]
  - HEADACHE [None]
  - MYDRIASIS [None]
  - ORAL INTAKE REDUCED [None]
  - SEROTONIN SYNDROME [None]
  - THERAPEUTIC AGENT TOXICITY [None]
  - TREMOR [None]
